FAERS Safety Report 18755194 (Version 2)
Quarter: 2021Q1

REPORT INFORMATION
  Report Type: Report from Study
  Country: GT (occurrence: GT)
  Receive Date: 20210119
  Receipt Date: 20210208
  Transmission Date: 20210419
  Serious: Yes (Other)
  Sender: FDA-Public Use
  Company Number: NVSC2020GT331253

PATIENT
  Age: 84 Year
  Sex: Female

DRUGS (3)
  1. VYMADA [Suspect]
     Active Substance: SACUBITRIL\VALSARTAN
     Indication: BLOOD PRESSURE ABNORMAL
     Dosage: 0.5 DF, BID (100 MG, HALF IN THE MORNING AND HALF IN THE AFTERNOON)
     Route: 048
     Dates: start: 20201125
  2. VYMADA [Suspect]
     Active Substance: SACUBITRIL\VALSARTAN
     Indication: BLOOD PRESSURE SYSTOLIC ABNORMAL
     Dosage: 100 MG, QD (1X100 MG)
     Route: 048
     Dates: start: 202011, end: 202012
  3. VYMADA [Suspect]
     Active Substance: SACUBITRIL\VALSARTAN
     Dosage: 200 MG, BID
     Route: 048
     Dates: start: 202101

REACTIONS (7)
  - Product use in unapproved indication [Unknown]
  - Wrong technique in product usage process [Unknown]
  - Blood viscosity increased [Unknown]
  - Blood pressure increased [Unknown]
  - Coagulation test abnormal [Unknown]
  - Inappropriate schedule of product administration [Unknown]
  - Cough [Recovering/Resolving]

NARRATIVE: CASE EVENT DATE: 202011
